FAERS Safety Report 4879615-2 (Version None)
Quarter: 2006Q1

REPORT INFORMATION
  Report Type: 
  Country: None (occurrence: None)
  Receive Date: 20060113
  Receipt Date: 20050422
  Transmission Date: 20060701
  Serious: No
  Sender: FDA-Public Use
  Company Number: US-BRISTOL-MYERS SQUIBB COMPANY-12943478

PATIENT
  Age: 40 Year
  Sex: Female
  Weight: 82 kg

DRUGS (7)
  1. IFEX [Suspect]
     Indication: SARCOMA
     Route: 042
     Dates: start: 20050214
  2. ANZEMET [Concomitant]
     Indication: PREMEDICATION
     Route: 042
     Dates: start: 20050214
  3. DECADRON [Concomitant]
     Indication: PREMEDICATION
     Route: 042
     Dates: start: 20050214
  4. ALOXI [Concomitant]
     Indication: PREMEDICATION
     Route: 042
     Dates: start: 20050214
  5. MESNA [Concomitant]
     Dates: start: 20050214
  6. ADRIAMYCIN PFS [Concomitant]
     Dates: start: 20050214
  7. DACARBAZINE [Concomitant]
     Dates: start: 20050214

REACTIONS (1)
  - HAEMATURIA [None]
